FAERS Safety Report 7932082-4 (Version None)
Quarter: 2011Q4

REPORT INFORMATION
  Report Type: 
  Country: None (occurrence: None)
  Receive Date: 20111121
  Receipt Date: 20111111
  Transmission Date: 20120403
  Serious: Yes (Life-Threatening, Other)
  Sender: FDA-Public Use
  Company Number: US-ASTRAZENECA-2011SE69339

PATIENT
  Sex: Female

DRUGS (21)
  1. ABILIFY [Suspect]
     Route: 048
  2. CLARITIN [Suspect]
  3. LIPITOR [Suspect]
  4. PROZAC [Suspect]
     Route: 048
  5. APAP W/ CODEINE [Suspect]
  6. BICILLIN L-A [Suspect]
  7. MEDROL [Suspect]
     Dosage: TWICE DAILY BEFORE MEAL
  8. VICODIN [Suspect]
     Dosage: 7.5 MG/750 MG 1 TABLET 3X DAILY PRN
  9. XANAX [Suspect]
  10. XENICAL [Suspect]
     Route: 048
  11. ACCOLATE [Suspect]
     Route: 048
  12. AMOXICILLIN [Suspect]
  13. SUPRAX [Suspect]
  14. AMBIEN [Suspect]
  15. ALLERFRIM [Suspect]
  16. SILVADENE [Suspect]
  17. ACTOS [Suspect]
  18. DONNATAL [Suspect]
  19. INSULIN [Suspect]
     Dosage: REGULAR 3 UNITS
  20. NORGESIC [Suspect]
  21. ZYVOX [Suspect]

REACTIONS (8)
  - RASH [None]
  - ANAPHYLACTIC SHOCK [None]
  - DIARRHOEA [None]
  - CONVULSION [None]
  - URTICARIA [None]
  - CONFUSIONAL STATE [None]
  - NAUSEA [None]
  - DRUG HYPERSENSITIVITY [None]
